FAERS Safety Report 10564331 (Version 2)
Quarter: 2014Q4

REPORT INFORMATION
  Report Type: Spontaneous
  Country: FR (occurrence: FR)
  Receive Date: 20141104
  Receipt Date: 20141231
  Transmission Date: 20150529
  Serious: Yes (Hospitalization, Other)
  Sender: FDA-Public Use
  Company Number: FR-ELI_LILLY_AND_COMPANY-FR201410009488

PATIENT
  Age: 52 Year
  Sex: Male
  Weight: 81 kg

DRUGS (3)
  1. MIANSERINE [Concomitant]
     Active Substance: MIANSERIN HYDROCHLORIDE
     Indication: DEPRESSION
     Dosage: 10 MG, BID
     Route: 048
     Dates: start: 201205, end: 201307
  2. CYMBALTA [Suspect]
     Active Substance: DULOXETINE HYDROCHLORIDE
     Indication: DEPRESSION
     Dosage: 30 MG, QD
     Route: 048
     Dates: start: 201205, end: 201307
  3. CYMBALTA [Suspect]
     Active Substance: DULOXETINE HYDROCHLORIDE
     Dosage: 60 MG, QD
     Route: 048
     Dates: start: 201012, end: 201102

REACTIONS (9)
  - Jaundice [Recovered/Resolved]
  - Chromaturia [Recovered/Resolved]
  - Splenomegaly [Recovered/Resolved]
  - Vomiting [Recovered/Resolved]
  - Asthenia [Recovered/Resolved]
  - Hepatitis [Recovered/Resolved]
  - Abdominal pain [Recovered/Resolved]
  - Pruritus [Recovered/Resolved]
  - Hepatojugular reflux [Recovered/Resolved]

NARRATIVE: CASE EVENT DATE: 201305
